FAERS Safety Report 13879080 (Version 1)
Quarter: 2017Q3

REPORT INFORMATION
  Report Type: Not Available
  Country: CN (occurrence: CN)
  Receive Date: 20170817
  Receipt Date: 20170817
  Transmission Date: 20171127
  Serious: Yes (Other)
  Sender: FDA-Public Use
  Company Number: CN-MIDATECHPHARMA-2017-CN-000014

PATIENT
  Age: 53 Year
  Sex: Female

DRUGS (1)
  1. TAMOXIFEN (NON-SPECIFIC) [Suspect]
     Active Substance: TAMOXIFEN
     Dosage: 20MG/DAY

REACTIONS (3)
  - Macular hole [Unknown]
  - Visual acuity reduced [Unknown]
  - Maculopathy [Unknown]
